FAERS Safety Report 17136826 (Version 4)
Quarter: 2020Q1

REPORT INFORMATION
  Report Type: Spontaneous
  Country: AU (occurrence: AU)
  Receive Date: 20191210
  Receipt Date: 20200224
  Transmission Date: 20200409
  Serious: Yes (Death, Other)
  Sender: FDA-Public Use
  Company Number: NVSC2019AU061701

PATIENT
  Sex: Male

DRUGS (7)
  1. BUDESONIDE. [Suspect]
     Active Substance: BUDESONIDE
     Indication: GRAFT VERSUS HOST DISEASE
     Dosage: UNK
     Route: 065
  2. ETANERCEPT [Suspect]
     Active Substance: ETANERCEPT
     Indication: GRAFT VERSUS HOST DISEASE
     Dosage: UNK
     Route: 065
  3. RUXOLITINIB [Suspect]
     Active Substance: RUXOLITINIB
     Indication: GRAFT VERSUS HOST DISEASE
     Dosage: 10 MG, BID
     Route: 048
     Dates: start: 20191216, end: 20200218
  4. METHYLPREDNISOLONE. [Suspect]
     Active Substance: METHYLPREDNISOLONE
     Indication: GRAFT VERSUS HOST DISEASE
     Dosage: 2 MG/KG
     Route: 065
  5. TACROLIMUS. [Suspect]
     Active Substance: TACROLIMUS
     Indication: GRAFT VERSUS HOST DISEASE
     Dosage: UNK
     Route: 065
  6. MYCOPHENOLATE MOFETIL. [Suspect]
     Active Substance: MYCOPHENOLATE MOFETIL
     Indication: GRAFT VERSUS HOST DISEASE
     Dosage: UNK
     Route: 065
  7. POSACONAZOLE [Suspect]
     Active Substance: POSACONAZOLE
     Indication: PRODUCT USED FOR UNKNOWN INDICATION
     Route: 065

REACTIONS (14)
  - Multiple organ dysfunction syndrome [Fatal]
  - Enterococcal bacteraemia [Fatal]
  - Product use in unapproved indication [Unknown]
  - Drug level increased [Unknown]
  - Hepatic steatosis [Unknown]
  - Alanine aminotransferase increased [Recovering/Resolving]
  - Anaemia [Unknown]
  - Thrombocytopenia [Unknown]
  - Haemophagocytic lymphohistiocytosis [Fatal]
  - Haemorrhage intracranial [Fatal]
  - Adenovirus infection [Fatal]
  - Bilirubin conjugated increased [Recovering/Resolving]
  - Coagulopathy [Fatal]
  - Klebsiella bacteraemia [Fatal]

NARRATIVE: CASE EVENT DATE: 20200214
